FAERS Safety Report 16126639 (Version 1)
Quarter: 2019Q2

REPORT INFORMATION
  Report Type: Spontaneous
  Country: US (occurrence: US)
  Receive Date: 20190327
  Receipt Date: 20190327
  Transmission Date: 20190711
  Serious: No
  Sender: FDA-Public Use
  Company Number: None

PATIENT
  Age: 32 Year
  Sex: Male
  Weight: 141.75 kg

DRUGS (1)
  1. XYZAL ALLERGY 24HR [Suspect]
     Active Substance: LEVOCETIRIZINE DIHYDROCHLORIDE
     Indication: HYPERSENSITIVITY
     Dosage: ?          QUANTITY:1 TABLET(S);?
     Route: 048

REACTIONS (8)
  - Vision blurred [None]
  - Heart rate increased [None]
  - Headache [None]
  - Chills [None]
  - Pain [None]
  - Urticaria [None]
  - Blood pressure increased [None]
  - Pyrexia [None]

NARRATIVE: CASE EVENT DATE: 20190327
